FAERS Safety Report 12334424 (Version 12)
Quarter: 2019Q3

REPORT INFORMATION
  Report Type: Report from Study
  Country: CO (occurrence: CO)
  Receive Date: 20160504
  Receipt Date: 20190917
  Transmission Date: 20191004
  Serious: Yes (Other)
  Sender: FDA-Public Use
  Company Number: PHHY2016CO023292

PATIENT
  Age: 58 Year
  Sex: Female
  Weight: 67 kg

DRUGS (11)
  1. ATORVASTATIN [Concomitant]
     Active Substance: ATORVASTATIN
     Indication: PRODUCT USED FOR UNKNOWN INDICATION
     Route: 065
  2. LEVOTHYROXINE. [Concomitant]
     Active Substance: LEVOTHYROXINE
     Indication: THYROID DISORDER
     Dosage: UNK, QD
     Route: 048
  3. FUROSEMIDE. [Concomitant]
     Active Substance: FUROSEMIDE
     Indication: PRODUCT USED FOR UNKNOWN INDICATION
     Route: 065
  4. TASIGNA [Suspect]
     Active Substance: NILOTINIB
     Indication: CHRONIC MYELOID LEUKAEMIA
     Dosage: 600 MG, QD
     Route: 048
     Dates: start: 20150801
  5. TASIGNA [Suspect]
     Active Substance: NILOTINIB
     Dosage: 2 DF, Q12H
     Route: 048
     Dates: start: 20150827
  6. BISACODYL. [Concomitant]
     Active Substance: BISACODYL
     Indication: PRODUCT USED FOR UNKNOWN INDICATION
     Route: 065
  7. PRAZOSIN. [Concomitant]
     Active Substance: PRAZOSIN
     Indication: PRODUCT USED FOR UNKNOWN INDICATION
     Route: 065
  8. AMLODIPINE [Concomitant]
     Active Substance: AMLODIPINE BESYLATE
     Indication: PRODUCT USED FOR UNKNOWN INDICATION
     Route: 065
  9. THIAMINE. [Concomitant]
     Active Substance: THIAMINE
     Indication: PRODUCT USED FOR UNKNOWN INDICATION
     Route: 065
  10. TASIGNA [Suspect]
     Active Substance: NILOTINIB
     Dosage: 600 MG, QD
     Route: 048
  11. LOSARTAN. [Suspect]
     Active Substance: LOSARTAN
     Indication: HYPERTENSION
     Dosage: 100 MG, QD
     Route: 065

REACTIONS (30)
  - Facial pain [Unknown]
  - Nausea [Unknown]
  - Peripheral swelling [Unknown]
  - Pain in extremity [Unknown]
  - Pruritus [Unknown]
  - Feeling of despair [Unknown]
  - Agitation [Unknown]
  - Malaise [Not Recovered/Not Resolved]
  - Skin wrinkling [Unknown]
  - Memory impairment [Unknown]
  - Facial neuralgia [Unknown]
  - Neuralgia [Unknown]
  - Pain [Not Recovered/Not Resolved]
  - Tremor [Unknown]
  - Inappropriate schedule of product administration [Not Recovered/Not Resolved]
  - Vulvovaginal pruritus [Unknown]
  - Swelling face [Unknown]
  - Rash generalised [Unknown]
  - Musculoskeletal pain [Unknown]
  - Vaginal abscess [Unknown]
  - Anorectal discomfort [Unknown]
  - Discomfort [Unknown]
  - Concomitant disease aggravated [Unknown]
  - Asthenia [Unknown]
  - Skin discolouration [Unknown]
  - Insomnia [Unknown]
  - Thyroid disorder [Unknown]
  - Feeling cold [Unknown]
  - Pruritus generalised [Unknown]
  - Ear pain [Unknown]

NARRATIVE: CASE EVENT DATE: 20150827
